FAERS Safety Report 12570412 (Version 1)
Quarter: 2016Q3

REPORT INFORMATION
  Report Type: Spontaneous
  Country: CA (occurrence: CA)
  Receive Date: 20160719
  Receipt Date: 20160719
  Transmission Date: 20161109
  Serious: Yes (Other)
  Sender: FDA-Public Use
  Company Number: CA-PFIZER INC-2016348222

PATIENT
  Age: 67 Year
  Sex: Female

DRUGS (5)
  1. ASACOL [Suspect]
     Active Substance: MESALAMINE
     Dosage: UNK
     Dates: end: 20110802
  2. WELLBUTRIN [Concomitant]
     Active Substance: BUPROPION HYDROCHLORIDE
     Dosage: 150 MG, 1X/DAY
     Route: 048
  3. CELEXA [Concomitant]
     Active Substance: CITALOPRAM HYDROBROMIDE
     Dosage: 40 MG, 1X/DAY
     Route: 048
  4. PANTOLOC [Suspect]
     Active Substance: PANTOPRAZOLE SODIUM
     Dosage: 40 MG, 1X/DAY
  5. IMODIUM [Concomitant]
     Active Substance: LOPERAMIDE HYDROCHLORIDE
     Dosage: UNK, 3X/DAY
     Route: 048

REACTIONS (2)
  - Colitis ulcerative [Recovering/Resolving]
  - Pancreatitis [Unknown]

NARRATIVE: CASE EVENT DATE: 2011
